FAERS Safety Report 8337257-0 (Version None)
Quarter: 2012Q2

REPORT INFORMATION
  Report Type: 
  Country: None (occurrence: None)
  Receive Date: 20120504
  Receipt Date: 20120424
  Transmission Date: 20120825
  Serious: Yes (Hospitalization)
  Sender: FDA-Public Use
  Company Number: US-JNJFOC-20120412154

PATIENT
  Sex: Male
  Weight: 91.7 kg

DRUGS (11)
  1. ZYRTEC [Concomitant]
  2. FERROUS SULFATE TAB [Concomitant]
  3. FISH OIL [Concomitant]
  4. EPIDUO [Concomitant]
  5. REMICADE [Suspect]
     Indication: CROHN'S DISEASE
     Route: 042
     Dates: start: 20120108
  6. MULTI-VITAMINS [Concomitant]
  7. REMICADE [Suspect]
     Route: 042
     Dates: start: 20110223
  8. PROBIOTICS [Concomitant]
  9. ANTIBIOTICS FOR IBD [Concomitant]
     Indication: INFLAMMATORY BOWEL DISEASE
  10. DIFFERIN [Concomitant]
  11. CALCIUM [Concomitant]

REACTIONS (1)
  - CROHN'S DISEASE [None]
